FAERS Safety Report 7269783-X (Version None)
Quarter: 2011Q1

REPORT INFORMATION
  Report Type: 
  Country: None (occurrence: None)
  Receive Date: 20110124
  Receipt Date: 20110111
  Transmission Date: 20110831
  Serious: Yes (Death, Hospitalization)
  Sender: FDA-Public Use
  Company Number: 2010AC000544

PATIENT
  Age: 64 Year
  Sex: Male

DRUGS (20)
  1. PROMETHAZINE [Concomitant]
  2. ADVAIR [Concomitant]
  3. DIGOXIN [Suspect]
     Indication: ARRHYTHMIA
     Dosage: 0.25 MG;QD;PO
     Route: 048
     Dates: start: 20071101, end: 20080401
  4. CHEMOTHERAPY [Concomitant]
  5. ZITHROMAX [Concomitant]
  6. LEVOPHEN [Concomitant]
  7. PREDNISONE [Concomitant]
  8. XANAX [Concomitant]
  9. METOPROLOL [Concomitant]
  10. LEXAPRO [Concomitant]
  11. LOPRESSOR [Concomitant]
  12. AVELOX [Concomitant]
  13. MEGACE [Concomitant]
  14. SPIRIVA [Concomitant]
  15. OMEPRAZOLE [Concomitant]
  16. ROCEPHIN [Concomitant]
  17. OXYGEN [Concomitant]
  18. OXYCODONE HCL [Concomitant]
  19. RESTORIL [Concomitant]
  20. ALBUTEROL [Concomitant]

REACTIONS (15)
  - ECONOMIC PROBLEM [None]
  - BACK PAIN [None]
  - LEUKOCYTOSIS [None]
  - LUNG CANCER METASTATIC [None]
  - INJURY [None]
  - PNEUMONIA [None]
  - LUNG NEOPLASM MALIGNANT [None]
  - CARDIO-RESPIRATORY ARREST [None]
  - MUSCULOSKELETAL PAIN [None]
  - METASTASES TO BONE [None]
  - RESPIRATORY FAILURE [None]
  - CARDIAC FAILURE CONGESTIVE [None]
  - PULMONARY EMBOLISM [None]
  - ELECTROCARDIOGRAM ST-T CHANGE [None]
  - BUNDLE BRANCH BLOCK RIGHT [None]
